FAERS Safety Report 6309119-1 (Version None)
Quarter: 2009Q3

REPORT INFORMATION
  Report Type: 
  Country: None (occurrence: None)
  Receive Date: 20090811
  Receipt Date: 20090727
  Transmission Date: 20100115
  Serious: Yes (Hospitalization)
  Sender: FDA-Public Use
  Company Number: 2009001961

PATIENT
  Age: 59 Year
  Sex: Male

DRUGS (8)
  1. ERLOTINIB (ERLOTINIB) (TABLET) (ERLOTINIB) [Suspect]
     Dosage: (150 MG,QD),ORAL
     Route: 048
     Dates: start: 20090324
  2. TOLEXINE (DOXYCYCLINE) [Concomitant]
  3. PREVISCAN (FLUINDIONE) [Concomitant]
  4. AMITRIPTYLINE HYDROCHLORIDE [Concomitant]
  5. LEDERFOLINE [Concomitant]
  6. ACID FOLIC [Concomitant]
  7. DEXERYL (OSINEX) [Concomitant]
  8. CELLUVISC (CELLUVISC) [Concomitant]

REACTIONS (10)
  - ACNE [None]
  - ANAEMIA [None]
  - ASTHENIA [None]
  - CONJUNCTIVITIS [None]
  - DECREASED APPETITE [None]
  - DEHYDRATION [None]
  - DYSPHAGIA [None]
  - GENERAL PHYSICAL HEALTH DETERIORATION [None]
  - SKIN DISORDER [None]
  - WEIGHT DECREASED [None]
